FAERS Safety Report 15945971 (Version 1)
Quarter: 2019Q1

REPORT INFORMATION
  Report Type: Spontaneous
  Country: IT (occurrence: IT)
  Receive Date: 20190211
  Receipt Date: 20190211
  Transmission Date: 20190417
  Serious: Yes (Other)
  Sender: FDA-Public Use
  Company Number: IT-AUROBINDO-AUR-APL-2019-006576

PATIENT

DRUGS (2)
  1. OXYCODONE PROLONGED RELEASE TABLET [Suspect]
     Active Substance: OXYCODONE
     Indication: NERVOUS SYSTEM NEOPLASM BENIGN
     Dosage: 1 DOSAGE FORM, AS NECESSARY
     Route: 048
  2. PALEXIA [Suspect]
     Active Substance: TAPENTADOL HYDROCHLORIDE
     Indication: NERVOUS SYSTEM NEOPLASM BENIGN
     Dosage: 1 DOSAGE FORM, AS NECESSARY
     Route: 048

REACTIONS (3)
  - Gastric disorder [Recovered/Resolved]
  - Melaena [Recovered/Resolved]
  - Hiatus hernia [Recovered/Resolved]

NARRATIVE: CASE EVENT DATE: 20181011
